FAERS Safety Report 15837317 (Version 3)
Quarter: 2020Q3

REPORT INFORMATION
  Report Type: Report from Study
  Country: CA (occurrence: CA)
  Receive Date: 20190117
  Receipt Date: 20200707
  Transmission Date: 20201102
  Serious: Yes (Other)
  Sender: FDA-Public Use
  Company Number: PHHY2016CA176771

PATIENT
  Sex: Male

DRUGS (1)
  1. GILENYA [Suspect]
     Active Substance: FINGOLIMOD HYDROCHLORIDE
     Indication: PRODUCT USED FOR UNKNOWN INDICATION
     Dosage: UNK
     Route: 048
     Dates: start: 20141222

REACTIONS (6)
  - Expanded disability status scale score increased [Unknown]
  - Ocular hyperaemia [Unknown]
  - Blindness [Unknown]
  - Vision blurred [Unknown]
  - Visual impairment [Unknown]
  - Eye pruritus [Unknown]
